FAERS Safety Report 20477459 (Version 1)
Quarter: 2022Q1

REPORT INFORMATION
  Report Type: Spontaneous
  Country: AT (occurrence: AT)
  Receive Date: 20220216
  Receipt Date: 20220216
  Transmission Date: 20220423
  Serious: Yes (Hospitalization, Other)
  Sender: FDA-Public Use
  Company Number: AT-BIOGEN-2022BI01096184

PATIENT
  Sex: Female

DRUGS (9)
  1. TYSABRI [Suspect]
     Active Substance: NATALIZUMAB
     Indication: Maternal exposure timing unspecified
     Dosage: 300 MG/21 TAGE
     Route: 064
     Dates: start: 201910
  2. TYSABRI [Suspect]
     Active Substance: NATALIZUMAB
     Dosage: 300 MG/21 TAGE
     Route: 063
  3. COPAXONE [Suspect]
     Active Substance: GLATIRAMER ACETATE
     Indication: Maternal exposure timing unspecified
     Route: 064
     Dates: start: 20200518
  4. COPAXONE [Suspect]
     Active Substance: GLATIRAMER ACETATE
     Route: 063
  5. VELNATAL PLUS [Concomitant]
     Indication: Nutritional supplementation
     Route: 065
     Dates: start: 202004, end: 202109
  6. Nerisona salbe [Concomitant]
     Indication: Eczema
     Dosage: IN THE MORNING
     Route: 065
     Dates: start: 20200701, end: 202008
  7. Magnonorm genericon [Concomitant]
     Indication: Mineral supplementation
     Dosage: 365 MILLIGRAM DAILY
     Route: 065
     Dates: start: 202004, end: 202006
  8. MAGNESIUM [Concomitant]
     Active Substance: MAGNESIUM
     Indication: Mineral supplementation
     Route: 065
     Dates: start: 202006, end: 202109
  9. Maxi-kalz [Concomitant]
     Indication: Mineral supplementation
     Dosage: 500 MILLIGRAM DAILY
     Route: 065
     Dates: start: 202004, end: 202112

REACTIONS (1)
  - Maternal exposure during breast feeding [Unknown]
